FAERS Safety Report 5530538-5 (Version None)
Quarter: 2007Q4

REPORT INFORMATION
  Report Type: 
  Country: None (occurrence: None)
  Receive Date: 20071130
  Receipt Date: 20071127
  Transmission Date: 20080405
  Serious: Yes (Other)
  Sender: FDA-Public Use
  Company Number: US-JNJFOC-20071104387

PATIENT
  Age: 84 Year
  Sex: Female
  Weight: 68.04 kg

DRUGS (3)
  1. TYLENOL (CAPLET) [Suspect]
  2. TYLENOL (CAPLET) [Suspect]
     Indication: ARTHRITIS
  3. VITAMINS AND MINERALS [Concomitant]

REACTIONS (2)
  - HAEMATOCHEZIA [None]
  - INCORRECT DRUG ADMINISTRATION DURATION [None]
